FAERS Safety Report 16449765 (Version 1)
Quarter: 2019Q2

REPORT INFORMATION
  Report Type: Spontaneous
  Country: TR (occurrence: TR)
  Receive Date: 20190619
  Receipt Date: 20190619
  Transmission Date: 20190711
  Serious: Yes (Other)
  Sender: FDA-Public Use
  Company Number: TR-SUN PHARMACEUTICAL INDUSTRIES LTD-2019RR-209682

PATIENT
  Age: 70 Year
  Sex: Female

DRUGS (1)
  1. DULOXETINE. [Suspect]
     Active Substance: DULOXETINE
     Indication: URINARY INCONTINENCE
     Dosage: 40 MILLIGRAM, UNK
     Route: 065

REACTIONS (2)
  - Incorrect dose administered [Unknown]
  - Hyponatraemia [Recovered/Resolved]
